FAERS Safety Report 4367854-9 (Version None)
Quarter: 2004Q2

REPORT INFORMATION
  Report Type: 
  Country: None (occurrence: None)
  Receive Date: 20040601
  Receipt Date: 20040601
  Transmission Date: 20050107
  Serious: Yes (Hospitalization)
  Sender: FDA-Public Use
  Company Number: None

PATIENT
  Age: 3 Year
  Sex: Female
  Weight: 14.4 kg

DRUGS (5)
  1. VINCRISTINE [Suspect]
     Indication: LEUKAEMIA
     Dosage: 0.9MG EVERY WEEK INTRAVENOUS
     Route: 042
     Dates: start: 20040402, end: 20040415
  2. DECADRON [Concomitant]
  3. PEG ASPARAGINASE [Concomitant]
  4. CYTARABINE [Concomitant]
  5. METHOTREXATE [Concomitant]

REACTIONS (1)
  - GUILLAIN-BARRE SYNDROME [None]
